FAERS Safety Report 14681142 (Version 1)
Quarter: 2018Q1

REPORT INFORMATION
  Report Type: Spontaneous
  Country: CZ (occurrence: CZ)
  Receive Date: 20180326
  Receipt Date: 20180326
  Transmission Date: 20180509
  Serious: Yes (Other)
  Sender: FDA-Public Use
  Company Number: CZ-BRISTOL-MYERS SQUIBB COMPANY-BMS-2018-024122

PATIENT
  Age: 68 Year
  Sex: Female

DRUGS (1)
  1. WARFARIN SODIUM. [Suspect]
     Active Substance: WARFARIN SODIUM
     Indication: ATRIAL FIBRILLATION
     Route: 065

REACTIONS (9)
  - Coagulopathy [Recovered/Resolved]
  - Anticoagulation drug level abnormal [Unknown]
  - Metabolic disorder [Recovered/Resolved]
  - Blood potassium decreased [Recovered/Resolved]
  - Blood viscosity abnormal [Recovered/Resolved]
  - Alopecia [Recovered/Resolved]
  - Nausea [Recovered/Resolved]
  - Drug level fluctuating [Recovered/Resolved]
  - Medical diet [Recovered/Resolved]
